FAERS Safety Report 12942352 (Version 1)
Quarter: 2016Q4

REPORT INFORMATION
  Report Type: Spontaneous
  Country: US (occurrence: US)
  Receive Date: 20161114
  Receipt Date: 20161114
  Transmission Date: 20170207
  Serious: No
  Sender: FDA-Public Use
  Company Number: US-ASTRAZENECA-2016SF15481

PATIENT
  Age: 63 Year
  Sex: Male
  Weight: 54.4 kg

DRUGS (5)
  1. SUCRALFATE. [Concomitant]
     Active Substance: SUCRALFATE
     Route: 048
  2. PRILOSEC [Suspect]
     Active Substance: OMEPRAZOLE MAGNESIUM
     Indication: GASTROOESOPHAGEAL REFLUX PROPHYLAXIS
     Route: 048
  3. PEPCID [Concomitant]
     Active Substance: FAMOTIDINE
  4. PREVACID [Concomitant]
     Active Substance: LANSOPRAZOLE
  5. PROTONIX [Concomitant]
     Active Substance: PANTOPRAZOLE SODIUM

REACTIONS (5)
  - Hypophagia [Unknown]
  - Dysphagia [Unknown]
  - Chest discomfort [Unknown]
  - Heart rate increased [Unknown]
  - Anxiety [Unknown]
